FAERS Safety Report 19057954 (Version 1)
Quarter: 2021Q1

REPORT INFORMATION
  Report Type: Report from Study
  Country: CH (occurrence: CH)
  Receive Date: 20210324
  Receipt Date: 20210324
  Transmission Date: 20210420
  Serious: Yes (Life-Threatening, Hospitalization, Other)
  Sender: FDA-Public Use
  Company Number: CH-BAXALTA-2016BLT001641

PATIENT
  Age: 70 Year
  Sex: Male
  Weight: 85 kg

DRUGS (42)
  1. ADVATE [Suspect]
     Active Substance: ANTIHEMOPHILIC FACTOR, HUMAN RECOMBINANT
     Dosage: 2000?3000 IU, AS NEEDED,
     Route: 042
  2. ADVATE [Suspect]
     Active Substance: ANTIHEMOPHILIC FACTOR, HUMAN RECOMBINANT
     Dosage: 4000 IU,
     Route: 042
     Dates: start: 20150512, end: 20150530
  3. ENATEC [Concomitant]
     Active Substance: ENALAPRIL MALEATE
     Indication: HYPERTENSION
     Dosage: 25 MILLIGRAM, BID
     Route: 065
     Dates: end: 20150323
  4. REMERON [Concomitant]
     Active Substance: MIRTAZAPINE
     Indication: HEADACHE
     Dosage: 7.5 MILLIGRAM, QD
     Route: 065
     Dates: start: 20161130
  5. ADVATE [Suspect]
     Active Substance: ANTIHEMOPHILIC FACTOR, HUMAN RECOMBINANT
     Dosage: 4000 IU,
     Route: 042
     Dates: start: 20150512, end: 20150530
  6. ADVATE [Suspect]
     Active Substance: ANTIHEMOPHILIC FACTOR, HUMAN RECOMBINANT
     Dosage: 4000 IU,
     Route: 042
     Dates: start: 20150512, end: 20150530
  7. ADVATE [Suspect]
     Active Substance: ANTIHEMOPHILIC FACTOR, HUMAN RECOMBINANT
     Dosage: 2000 UNIT UNKNOWN
     Route: 042
     Dates: start: 20201202
  8. ADVATE [Suspect]
     Active Substance: ANTIHEMOPHILIC FACTOR, HUMAN RECOMBINANT
     Dosage: 2000 UNIT UNKNOWN
     Route: 042
     Dates: start: 20201202
  9. VASCORD                            /00014302/ [Concomitant]
     Indication: HYPERTENSION
     Dosage: 20/5 MG, 1X A DAY
     Dates: start: 20150323
  10. MEDROL COMP [Concomitant]
     Indication: ARTHROPATHY
     Dosage: UNK
     Route: 065
     Dates: start: 20171025, end: 20171025
  11. YELLOX [Concomitant]
     Active Substance: BROMFENAC SODIUM
     Indication: CATARACT
     Dosage: 0.9 MG/ML DROPS, TWICE PER DAY
     Route: 065
     Dates: start: 20200211, end: 20200224
  12. ADVATE [Suspect]
     Active Substance: ANTIHEMOPHILIC FACTOR, HUMAN RECOMBINANT
     Dosage: 2000 IU, ONCE
     Route: 042
     Dates: start: 20150512, end: 20150512
  13. AMLODIPINO [AMLODIPINE] [Concomitant]
     Active Substance: AMLODIPINE BESYLATE
     Indication: HYPERTENSION
     Dosage: 5 MILLIGRAM, QD
     Route: 065
     Dates: start: 20120314, end: 20150323
  14. LACRI VISION [Concomitant]
     Indication: CATARACT
     Dosage: UNK
     Route: 065
     Dates: start: 20200211
  15. ADVATE [Suspect]
     Active Substance: ANTIHEMOPHILIC FACTOR, HUMAN RECOMBINANT
     Dosage: 2000 IU, ONCE
     Route: 042
     Dates: start: 20150512, end: 20150512
  16. KALIUM EFFERVESCENS BEZCUKROWY [Concomitant]
     Active Substance: POTASSIUM BICARBONATE\POTASSIUM CITRATE
     Indication: HYPOCALCAEMIA
     Dosage: 30 MILLIMOLE, QD
     Dates: start: 20150814, end: 20150817
  17. MIRTAZAPIN [Concomitant]
     Active Substance: MIRTAZAPINE
     Indication: HEADACHE
     Dosage: 30 MILLIGRAM, QD
     Route: 065
     Dates: end: 20191104
  18. NEXIUM 1?2?3 [Concomitant]
     Active Substance: AMOXICILLIN\CLARITHROMYCIN\ESOMEPRAZOLE
     Indication: ABDOMINAL PAIN UPPER
     Dosage: 40 MILLIGRAM, BID
     Route: 065
     Dates: start: 202003
  19. NOVALGIN [CAFFEINE;PARACETAMOL;PROPYPHENAZONE] [Concomitant]
     Active Substance: ACETAMINOPHEN\CAFFEINE\PROPYPHENAZONE
     Indication: PAIN
     Dosage: 500 MILLIGRAM, PRN
     Route: 065
     Dates: start: 20200803, end: 20200928
  20. TARGIN [Concomitant]
     Active Substance: NALOXONE HYDROCHLORIDE\OXYCODONE HYDROCHLORIDE
     Indication: PAIN
     Dosage: 10/5 MILLIGRAM
     Route: 065
     Dates: start: 20190506, end: 201909
  21. ADVATE [Suspect]
     Active Substance: ANTIHEMOPHILIC FACTOR, HUMAN RECOMBINANT
     Dosage: 2000 IU, ONCE
     Route: 042
     Dates: start: 20150512, end: 20150512
  22. ADVATE [Suspect]
     Active Substance: ANTIHEMOPHILIC FACTOR, HUMAN RECOMBINANT
     Dosage: 2000 IU, ONCE
     Route: 042
     Dates: start: 20150512, end: 20150512
  23. PRED FORTE [Concomitant]
     Active Substance: PREDNISOLONE ACETATE
     Indication: CATARACT
     Dosage: 1 PERCENT, TID
     Route: 065
     Dates: start: 20200225, end: 20200302
  24. TOBRADEX ST [Concomitant]
     Active Substance: DEXAMETHASONE\TOBRAMYCIN
     Indication: CATARACT
     Dosage: 3 MILLIGRAM, 5 TIMES PER DAY
     Route: 065
     Dates: start: 20200211, end: 20200217
  25. ADVATE [Suspect]
     Active Substance: ANTIHEMOPHILIC FACTOR, HUMAN RECOMBINANT
     Indication: FACTOR VIII DEFICIENCY
     Dosage: 2000 IU, ONCE
     Route: 042
     Dates: start: 20150415
  26. ADVATE [Suspect]
     Active Substance: ANTIHEMOPHILIC FACTOR, HUMAN RECOMBINANT
     Dosage: 2000 IU, ONCE
     Route: 042
     Dates: start: 20150512, end: 20150512
  27. CYKLOKAPRON PFIZER [Concomitant]
     Indication: EPISTAXIS
     Dosage: 5 PERCENT, PRN
     Route: 065
     Dates: start: 20201008
  28. DIAMOX SPECIFIC [Concomitant]
     Indication: CATARACT OPERATION
     Dosage: 250 MILLIGRAM
     Route: 065
     Dates: start: 20200225, end: 20200225
  29. ZOLPIDEM [Concomitant]
     Active Substance: ZOLPIDEM TARTRATE
     Indication: HEADACHE
     Dosage: 10 MILLIGRAM, QD
     Route: 065
  30. ADVATE [Suspect]
     Active Substance: ANTIHEMOPHILIC FACTOR, HUMAN RECOMBINANT
     Indication: FACTOR VIII DEFICIENCY
     Dosage: 2000 IU, ONCE
     Route: 042
     Dates: start: 20150415
  31. ADVATE [Suspect]
     Active Substance: ANTIHEMOPHILIC FACTOR, HUMAN RECOMBINANT
     Dosage: 2000 IU, ONCE
     Route: 042
     Dates: start: 20150512, end: 20150512
  32. ADVATE [Suspect]
     Active Substance: ANTIHEMOPHILIC FACTOR, HUMAN RECOMBINANT
     Dosage: 2000?3000 IU, AS NEEDED,
     Route: 042
  33. ADVATE [Suspect]
     Active Substance: ANTIHEMOPHILIC FACTOR, HUMAN RECOMBINANT
     Dosage: 2000?3000 IU, AS NEEDED,
     Route: 042
  34. ADVATE [Suspect]
     Active Substance: ANTIHEMOPHILIC FACTOR, HUMAN RECOMBINANT
     Dosage: 2000 UNIT UNKNOWN
     Route: 042
     Dates: start: 20201202
  35. CARVEDILOL. [Concomitant]
     Active Substance: CARVEDILOL
     Indication: HYPERTENSION
     Dosage: 25 MG, 4X A DAY
     Route: 065
  36. DIAMOX SPECIFIC [Concomitant]
     Indication: CATARACT OPERATION
     Dosage: 250 MILLIGRAM, BID
     Route: 065
     Dates: start: 20200211, end: 20200211
  37. TRAMAL [Concomitant]
     Active Substance: TRAMADOL
     Indication: PAIN
     Dosage: 100 MG/ML, AS REQUIRED
     Route: 065
     Dates: start: 20200928
  38. ADVATE [Suspect]
     Active Substance: ANTIHEMOPHILIC FACTOR, HUMAN RECOMBINANT
     Indication: FACTOR VIII DEFICIENCY
     Dosage: 2000 IU, ONCE
     Route: 042
     Dates: start: 20150415
  39. DAFALGAN [Concomitant]
     Active Substance: ACETAMINOPHEN
     Indication: HEADACHE
     Dosage: 1 G, AS NEEDED
     Route: 065
     Dates: start: 2014
  40. DULCOLAX (BISACODYL) [Concomitant]
     Active Substance: BISACODYL
     Indication: CONSTIPATION
     Dosage: UNK UNK, AS NEEDED
     Route: 065
     Dates: start: 2013
  41. CANDESARTAN SANDOZ [Concomitant]
     Active Substance: CANDESARTAN
     Indication: HYPERTENSION
     Dosage: 16 MILLIGRAM, QD
     Route: 065
     Dates: start: 20200217, end: 20200322
  42. ROPIVACAINE. [Concomitant]
     Active Substance: ROPIVACAINE HYDROCHLORIDE
     Indication: ARTHROPATHY
     Dosage: UNK
     Route: 065
     Dates: start: 20171025, end: 20171025

REACTIONS (7)
  - Arthritis [Recovered/Resolved]
  - Arthralgia [Recovered/Resolved]
  - Swelling [Recovered/Resolved]
  - Joint injury [Recovered/Resolved]
  - Staphylococcal bacteraemia [Recovered/Resolved with Sequelae]
  - Device related infection [Recovered/Resolved with Sequelae]
  - Inflammation [Recovered/Resolved]

NARRATIVE: CASE EVENT DATE: 20150512
